APPROVED DRUG PRODUCT: PENTOXIFYLLINE
Active Ingredient: PENTOXIFYLLINE
Strength: 400MG
Dosage Form/Route: TABLET, EXTENDED RELEASE;ORAL
Application: A074877 | Product #001
Applicant: HERITAGE PHARMACEUTICALS INC DBA AVET PHARMACEUTICALS INC
Approved: Jul 8, 1997 | RLD: No | RS: No | Type: DISCN